FAERS Safety Report 8948223 (Version 1)
Quarter: 2012Q4

REPORT INFORMATION
  Report Type: Spontaneous
  Country: SG (occurrence: None)
  Receive Date: 20121127
  Receipt Date: 20121127
  Transmission Date: 20130627
  Serious: Yes (Death)
  Sender: FDA-Public Use
  Company Number: EUS-2012-00941

PATIENT
  Age: 4 Year
  Sex: Male

DRUGS (6)
  1. ASPARAGINASE [Suspect]
     Indication: ACUTE LYMPHOCYTIC LEUKAEMIA
     Dosage: 10,000 units run in as a drip infusion with 200 cc. normal saline over 3 hours
     Route: 042
     Dates: start: 19730323, end: 197303
  2. ASPARAGINASE [Suspect]
     Indication: ACUTE LYMPHOCYTIC LEUKAEMIA
     Dosage: 10,000 units run in as a drip infusion with 200 cc. normal saline over 3 hours
     Route: 042
     Dates: start: 19730330
  3. PREDNISOLONE [Concomitant]
  4. VINCRISTINE (VINCRISTINE) [Concomitant]
  5. METHOTREXATE (METHOTREXATE) (METHOTREXATE) [Concomitant]
  6. 6-MERCAPTOPURINE (MERCAPTOPURINE) (MERCAPTOPURINE) [Concomitant]

REACTIONS (6)
  - Pancreatitis haemorrhagic [None]
  - Sudden death [None]
  - Cold sweat [None]
  - Pancreatic necrosis [None]
  - Hepatic steatosis [None]
  - Hepatomegaly [None]
